FAERS Safety Report 6235318-3 (Version None)
Quarter: 2009Q2

REPORT INFORMATION
  Report Type: 
  Country: None (occurrence: None)
  Receive Date: 20090615
  Receipt Date: 20090529
  Transmission Date: 20091009
  Serious: Yes (Other)
  Sender: FDA-Public Use
  Company Number: 2009EU002151

PATIENT
  Age: 76 Year
  Sex: Male

DRUGS (1)
  1. VESICARE [Suspect]
     Indication: BENIGN PROSTATIC HYPERPLASIA
     Dosage: 10 MG, UID/QD, ORAL
     Route: 048
     Dates: start: 20090224, end: 20090309

REACTIONS (4)
  - ABNORMAL BEHAVIOUR [None]
  - COGNITIVE DISORDER [None]
  - HALLUCINATION [None]
  - SOMNOLENCE [None]
